FAERS Safety Report 5114011-4 (Version None)
Quarter: 2006Q3

REPORT INFORMATION
  Report Type: 
  Country: None (occurrence: None)
  Receive Date: 20060920
  Receipt Date: 20060908
  Transmission Date: 20061208
  Serious: Yes (Other)
  Sender: FDA-Public Use
  Company Number: 2004EU000044

PATIENT
  Sex: Male

DRUGS (1)
  1. PROTOPIC [Suspect]
     Indication: DERMATITIS ATOPIC
     Dosage: 0.03%, TOPICAL; SEE IMAGE
     Route: 061

REACTIONS (2)
  - HERPES ZOSTER OPHTHALMIC [None]
  - MOLLUSCUM CONTAGIOSUM [None]
